FAERS Safety Report 8564059-2 (Version None)
Quarter: 2012Q3

REPORT INFORMATION
  Report Type: 
  Country: None (occurrence: None)
  Receive Date: 20120803
  Receipt Date: 20120720
  Transmission Date: 20120928
  Serious: Yes (Other)
  Sender: FDA-Public Use
  Company Number: CN-RANBAXY-2012R1-58562

PATIENT
  Age: 12 Month
  Sex: Female

DRUGS (2)
  1. OXCARBAZEPINE [Suspect]
     Dosage: 22MG/KG/DAY
     Route: 048
  2. OXCARBAZEPINE [Suspect]
     Indication: GRAND MAL CONVULSION
     Dosage: UNK
     Route: 048

REACTIONS (1)
  - MYOCLONIC EPILEPSY [None]
